FAERS Safety Report 17723936 (Version 1)
Quarter: 2020Q2

REPORT INFORMATION
  Report Type: Spontaneous
  Country: ES (occurrence: ES)
  Receive Date: 20200429
  Receipt Date: 20200429
  Transmission Date: 20200714
  Serious: Yes (Other)
  Sender: FDA-Public Use
  Company Number: ES-MYLANLABS-2020M1041684

PATIENT
  Age: 78 Year
  Sex: Male

DRUGS (1)
  1. ZOLEDRONIC ACID [Suspect]
     Active Substance: ZOLEDRONIC ACID
     Indication: HYPERCALCAEMIA OF MALIGNANCY
     Dosage: DOSIS UNICA
     Route: 041
     Dates: start: 20191205, end: 20191205

REACTIONS (3)
  - Febrile convulsion [Recovered/Resolved]
  - Rash [Recovered/Resolved]
  - Erythema [Recovered/Resolved]

NARRATIVE: CASE EVENT DATE: 20191205
